FAERS Safety Report 12310881 (Version 1)
Quarter: 2016Q2

REPORT INFORMATION
  Report Type: Spontaneous
  Country: CA (occurrence: CA)
  Receive Date: 20160427
  Receipt Date: 20160427
  Transmission Date: 20160815
  Serious: Yes (Other)
  Sender: FDA-Public Use
  Company Number: CA-LPDUSPRD-20160334

PATIENT
  Age: 30 Year
  Sex: Female

DRUGS (9)
  1. PHOENOBARBITAL [Concomitant]
     Dosage: 30MG AM 45MG PM
     Route: 065
  2. COLACE [Concomitant]
     Active Substance: DOCUSATE SODIUM
     Dosage: DOSE UNKNOWN
     Route: 065
  3. VENOFER [Suspect]
     Active Substance: IRON SUCROSE
     Dosage: 300 MG IN 250 ML NS
     Route: 042
     Dates: start: 20160414, end: 20160414
  4. RABEPRAZOLE [Concomitant]
     Active Substance: RABEPRAZOLE
     Dosage: DOSE UNKNOWN
     Route: 065
  5. NOVORAPID [Concomitant]
     Active Substance: INSULIN ASPART
     Dosage: DOSE UNKNOWN
     Route: 065
  6. LEVEMIR [Concomitant]
     Active Substance: INSULIN DETEMIR
     Dosage: DOSE UNKNOWN
     Route: 065
  7. PERIDOPRIL [Concomitant]
     Dosage: DOSE UNKNOWN
     Route: 065
  8. FERROUS FUMARATE [Concomitant]
     Active Substance: FERROUS FUMARATE
     Dosage: DOSE UNKNOWN
     Route: 065
  9. SENOKOT [Concomitant]
     Active Substance: SENNOSIDES
     Dosage: DOSE UNKNOWN
     Route: 065

REACTIONS (4)
  - White blood cell count increased [Unknown]
  - Syncope [Unknown]
  - Headache [Unknown]
  - Head injury [Unknown]

NARRATIVE: CASE EVENT DATE: 20160414
